FAERS Safety Report 10084865 (Version 1)
Quarter: 2014Q2

REPORT INFORMATION
  Report Type: Report from Study
  Country: US (occurrence: US)
  Receive Date: 20140417
  Receipt Date: 20140417
  Transmission Date: 20141212
  Serious: Yes (Other)
  Sender: FDA-Public Use
  Company Number: US-ABBVIE-14P-163-1224271-00

PATIENT
  Sex: Female
  Weight: 64.47 kg

DRUGS (3)
  1. LUPRON DEPOT [Suspect]
     Indication: ENDOMETRIOSIS
     Route: 030
     Dates: start: 2004
  2. TRAMADOL [Concomitant]
     Indication: PAIN
  3. TRAZODONE [Concomitant]
     Indication: PRODUCT USED FOR UNKNOWN INDICATION

REACTIONS (3)
  - Scar [Recovered/Resolved]
  - Neuropathy peripheral [Not Recovered/Not Resolved]
  - Migraine [Recovered/Resolved]
